FAERS Safety Report 6992740-5 (Version None)
Quarter: 2010Q3

REPORT INFORMATION
  Report Type: 
  Country: None (occurrence: None)
  Receive Date: 20100916
  Receipt Date: 20100916
  Transmission Date: 20110219
  Serious: Yes (Life-Threatening, Hospitalization)
  Sender: FDA-Public Use
  Company Number: None

PATIENT
  Sex: Female
  Weight: 60.3284 kg

DRUGS (1)
  1. ESTRACE [Suspect]

REACTIONS (2)
  - MASTECTOMY [None]
  - MENOPAUSE [None]
